FAERS Safety Report 17730877 (Version 1)
Quarter: 2020Q2

REPORT INFORMATION
  Report Type: Spontaneous
  Country: DE (occurrence: DE)
  Receive Date: 20200430
  Receipt Date: 20200430
  Transmission Date: 20200714
  Serious: Yes (Other)
  Sender: FDA-Public Use
  Company Number: NVSC2020DE099420

PATIENT
  Age: 56 Year
  Sex: Female
  Weight: 56 kg

DRUGS (2)
  1. OLMESARTAN/AMLODIPIN - 1 A PHARMA 20 MG/5 MG FILMTABLETTEN [Suspect]
     Active Substance: AMLODIPINE BESYLATE\OLMESARTAN MEDOXOMIL
     Indication: HYPERTENSION
     Dosage: 1 DF, QD (ANFANGS 20MG/5MG, NACH 1 MONAT 40MG/10MG)
     Route: 048
     Dates: start: 201911, end: 201912
  2. OLMESARTAN/AMLODIPIN - 1 A PHARMA 20 MG/5 MG FILMTABLETTEN [Suspect]
     Active Substance: AMLODIPINE BESYLATE\OLMESARTAN MEDOXOMIL
     Dosage: 2 DF, QD
     Route: 048
     Dates: start: 201912, end: 201912

REACTIONS (10)
  - Dizziness [Unknown]
  - Restlessness [Unknown]
  - Chest pain [Unknown]
  - Hypotension [Unknown]
  - Blood pressure increased [Unknown]
  - Disturbance in attention [Unknown]
  - Flushing [Unknown]
  - Pollakiuria [Unknown]
  - Performance status decreased [Unknown]
  - Joint swelling [Unknown]

NARRATIVE: CASE EVENT DATE: 201911
